FAERS Safety Report 19358707 (Version 1)
Quarter: 2021Q2

REPORT INFORMATION
  Report Type: Spontaneous
  Country: CZ (occurrence: CZ)
  Receive Date: 20210601
  Receipt Date: 20210601
  Transmission Date: 20210717
  Serious: Yes (Other)
  Sender: FDA-Public Use
  Company Number: NVSC2021CZ116294

PATIENT
  Sex: Male

DRUGS (1)
  1. TELMISARTAN SANDOZ [Suspect]
     Active Substance: TELMISARTAN
     Indication: HYPERTENSION
     Dosage: UNK
     Route: 048

REACTIONS (4)
  - Dysgeusia [Unknown]
  - Abdominal pain [Unknown]
  - Vomiting [Unknown]
  - Suspected product quality issue [Unknown]
